FAERS Safety Report 23664258 (Version 1)
Quarter: 2024Q1

REPORT INFORMATION
  Report Type: Spontaneous
  Country: US (occurrence: US)
  Receive Date: 20240322
  Receipt Date: 20240322
  Transmission Date: 20240410
  Serious: No
  Sender: FDA-Public Use
  Company Number: US-AMGEN-USASP2024058364

PATIENT
  Age: 44 Year
  Sex: Female

DRUGS (2)
  1. MVASI [Suspect]
     Active Substance: BEVACIZUMAB-AWWB
     Indication: Breast cancer
     Dosage: 600 MG DOSE REQUESTED: ONE 400 MG VIAL AND TWO 100 MG VIALS 400 MG
     Route: 065
  2. MVASI [Suspect]
     Active Substance: BEVACIZUMAB-AWWB
     Dosage: 100 MG
     Route: 065

REACTIONS (3)
  - Gastrooesophageal reflux disease [Unknown]
  - Anxiety [Unknown]
  - Vaginal disorder [Unknown]

NARRATIVE: CASE EVENT DATE: 20240229
